FAERS Safety Report 16047425 (Version 1)
Quarter: 2019Q1

REPORT INFORMATION
  Report Type: Spontaneous
  Country: US (occurrence: US)
  Receive Date: 20190307
  Receipt Date: 20190307
  Transmission Date: 20190418
  Serious: Yes (Hospitalization, Other)
  Sender: FDA-Public Use
  Company Number: US-JNJFOC-20190306408

PATIENT
  Age: 77 Year
  Sex: Female

DRUGS (1)
  1. INVOKANA [Suspect]
     Active Substance: CANAGLIFLOZIN
     Indication: PRODUCT USED FOR UNKNOWN INDICATION
     Route: 048

REACTIONS (4)
  - Cellulitis [Recovering/Resolving]
  - Osteomyelitis acute [Recovered/Resolved]
  - Impaired healing [Recovered/Resolved]
  - Foot amputation [Unknown]

NARRATIVE: CASE EVENT DATE: 201607
